FAERS Safety Report 9399701 (Version 1)
Quarter: 2013Q3

REPORT INFORMATION
  Report Type: Spontaneous
  Country: DE (occurrence: DE)
  Receive Date: 20130715
  Receipt Date: 20130715
  Transmission Date: 20140515
  Serious: Yes (Hospitalization, Disabling, Other)
  Sender: FDA-Public Use
  Company Number: DE-JNJFOC-20130701836

PATIENT
  Sex: Male
  Weight: 75 kg

DRUGS (15)
  1. CICLOPIROX OLAMINE [Concomitant]
     Route: 061
  2. SPIRO [Concomitant]
     Route: 065
  3. TORASEMID BETA [Concomitant]
     Route: 065
  4. XARELTO [Suspect]
     Indication: CEREBROVASCULAR ACCIDENT PROPHYLAXIS
     Route: 048
     Dates: start: 20130514, end: 20130603
  5. XARELTO [Suspect]
     Indication: ATRIAL FIBRILLATION
     Route: 048
     Dates: start: 20130514, end: 20130603
  6. ALLOPURINOL [Concomitant]
     Route: 065
  7. AMBROXOL HYDROCHLORIDE [Concomitant]
     Route: 065
  8. BISOPROLOL FUMARATE [Concomitant]
     Route: 065
  9. DIGIMERCK [Concomitant]
     Route: 065
  10. FUROSEMIDE [Concomitant]
     Route: 065
  11. GLIBENCLAMIDE [Concomitant]
     Route: 065
  12. IBUPROFEN [Concomitant]
     Route: 065
  13. ISDN [Concomitant]
     Route: 065
  14. MOVICOL [Concomitant]
     Route: 065
  15. PANTOPRAZOLE [Concomitant]
     Route: 065

REACTIONS (2)
  - Retinal haemorrhage [Unknown]
  - Retinal detachment [Unknown]
